FAERS Safety Report 4822300-3 (Version None)
Quarter: 2005Q4

REPORT INFORMATION
  Report Type: 
  Country: None (occurrence: None)
  Receive Date: 20051103
  Receipt Date: 20051014
  Transmission Date: 20060501
  Serious: No
  Sender: FDA-Public Use
  Company Number: EWC051046579

PATIENT
  Age: 30 Year
  Sex: Male

DRUGS (1)
  1. ZYPREXA [Suspect]
     Indication: SCHIZOPHRENIA
     Dosage: 10 MG DAY
     Dates: start: 20010101

REACTIONS (4)
  - BLOOD GLUCOSE INCREASED [None]
  - LYMPHOCYTE COUNT DECREASED [None]
  - THIRST [None]
  - WHITE BLOOD CELL COUNT INCREASED [None]
